FAERS Safety Report 19753383 (Version 1)
Quarter: 2021Q3

REPORT INFORMATION
  Report Type: Spontaneous
  Country: JP (occurrence: JP)
  Receive Date: 20210826
  Receipt Date: 20210826
  Transmission Date: 20211014
  Serious: Yes (Hospitalization, Disabling, Other)
  Sender: FDA-Public Use
  Company Number: JP-REGENERON PHARMACEUTICALS, INC.-2021-59924

PATIENT

DRUGS (16)
  1. EYLEA [Suspect]
     Active Substance: AFLIBERCEPT
     Dosage: 2 MG, ONCE, LEFT EYE
     Dates: start: 20161220, end: 20161220
  2. EYLEA [Suspect]
     Active Substance: AFLIBERCEPT
     Dosage: 2 MG, ONCE, LEFT EYE
     Dates: start: 20170818, end: 20170818
  3. EYLEA [Suspect]
     Active Substance: AFLIBERCEPT
     Dosage: 2 MG, ONCE, LEFT EYE
     Dates: start: 20210331, end: 20210331
  4. EYLEA [Suspect]
     Active Substance: AFLIBERCEPT
     Dosage: 2 MG, ONCE, LEFT EYE
     Dates: start: 20170428, end: 20170428
  5. GATIFLO [Concomitant]
     Active Substance: GATIFLOXACIN
     Indication: INFECTION PROPHYLAXIS
     Dosage: 4 TIMES A DAY, FEW DROPS, ON THE DAY OF INTRAVITREAL INJECTION, 3 DAYS BEFORE AND AFTER, LEFT EYE
     Route: 047
  6. EYLEA [Suspect]
     Active Substance: AFLIBERCEPT
     Dosage: 2 MG, ONCE, LEFT EYE
     Dates: start: 20201218, end: 20201218
  7. XYLOCAINE #1 [Concomitant]
     Active Substance: LIDOCAINE
     Indication: ANAESTHESIA PROCEDURE
     Dosage: BEFORE INTRAVITREAL INJECTION (ON THE DAY), LEFT EYE, FEW DROPS, 4 TIMES PER DAY
     Route: 047
  8. EYLEA [Suspect]
     Active Substance: AFLIBERCEPT
     Dosage: 2 MG, ONCE, LEFT EYE
     Dates: start: 20180216, end: 20180216
  9. EYLEA [Suspect]
     Active Substance: AFLIBERCEPT
     Dosage: 2 MG, ONCE, LEFT EYE
     Dates: start: 20190410, end: 20190410
  10. EYLEA [Suspect]
     Active Substance: AFLIBERCEPT
     Dosage: 2 MG, ONCE, LEFT EYE
     Dates: start: 20191004, end: 20191004
  11. POVIDONE?IODINE. [Concomitant]
     Active Substance: POVIDONE-IODINE
     Indication: INFECTION PROPHYLAXIS
     Dosage: 4 TIMES A DAY, FEW DROPS, BEFORE INTRAVITREAL INJECTION (ON THE DAY), LEFT EYE
     Route: 047
  12. EYLEA [Suspect]
     Active Substance: AFLIBERCEPT
     Indication: NEOVASCULAR AGE-RELATED MACULAR DEGENERATION
     Dosage: 2 MG, ONCE, LEFT EYE
     Dates: start: 20160902, end: 20160902
  13. EYLEA [Suspect]
     Active Substance: AFLIBERCEPT
     Dosage: 2 MG, ONCE, LEFT EYE
     Dates: start: 20200902, end: 20200902
  14. BAYASPIRIN [Suspect]
     Active Substance: ASPIRIN
     Indication: THROMBOTIC CEREBRAL INFARCTION
     Dosage: UNK
     Dates: start: 20210415
  15. BENOXIL [Concomitant]
     Active Substance: BENOXINATE HYDROCHLORIDE
     Indication: ANAESTHESIA PROCEDURE
     Dosage: 4 TIMES A DAY, FEW DROPS, ON THE DAY OF INTRAVITREAL INJECTION, BEFORE INJECTION, LEFT EYE
     Route: 047
  16. EYLEA [Suspect]
     Active Substance: AFLIBERCEPT
     Dosage: 2 MG, ONCE, LEFT EYE
     Dates: start: 20181026, end: 20181026

REACTIONS (4)
  - Aphasia [Unknown]
  - Hemiparesis [Unknown]
  - Thrombotic cerebral infarction [Recovered/Resolved with Sequelae]
  - Atrial fibrillation [Unknown]

NARRATIVE: CASE EVENT DATE: 202104
